FAERS Safety Report 24535903 (Version 1)
Quarter: 2024Q4

REPORT INFORMATION
  Report Type: Spontaneous
  Country: JP (occurrence: JP)
  Receive Date: 20241022
  Receipt Date: 20241022
  Transmission Date: 20250115
  Serious: Yes (Hospitalization)
  Sender: SYMOGEN
  Company Number: JP-PARTNER THERAPEUTICS-2024PTX04061

PATIENT

DRUGS (1)
  1. SARGRAMOSTIM [Suspect]
     Active Substance: SARGRAMOSTIM
     Indication: Alveolar proteinosis

REACTIONS (1)
  - Condition aggravated [Unknown]

NARRATIVE: CASE EVENT DATE: 20240924
